FAERS Safety Report 5743972-5 (Version None)
Quarter: 2008Q2

REPORT INFORMATION
  Report Type: 
  Country: None (occurrence: None)
  Receive Date: 20080516
  Receipt Date: 20080516
  Transmission Date: 20081010
  Serious: Yes (Life-Threatening, Hospitalization, Other)
  Sender: FDA-Public Use
  Company Number: None

PATIENT
  Sex: Male
  Weight: 104.3273 kg

DRUGS (1)
  1. DIGITEK  0.25 MG [Suspect]
     Indication: CORONARY ARTERIAL STENT INSERTION
     Dosage: 30  1/2 TABLET DAILY PO
     Route: 048
     Dates: start: 20061013, end: 20070128

REACTIONS (2)
  - CARDIAC DISORDER [None]
  - HYPOTENSION [None]
